FAERS Safety Report 9388821 (Version 1)
Quarter: 2013Q3

REPORT INFORMATION
  Report Type: Report from Study
  Country: US (occurrence: US)
  Receive Date: 20130708
  Receipt Date: 20130708
  Transmission Date: 20140515
  Serious: Yes (Other)
  Sender: FDA-Public Use
  Company Number: US-ASTRAZENECA-2013SE50191

PATIENT
  Age: 19 Year
  Sex: Female
  Weight: 66.7 kg

DRUGS (5)
  1. SEROQUEL XR [Suspect]
     Indication: AFFECTIVE DISORDER
     Route: 048
     Dates: start: 201210, end: 201306
  2. SEROQUEL XR [Suspect]
     Indication: AFFECTIVE DISORDER
     Route: 048
     Dates: start: 201306, end: 20130625
  3. SEROQUEL XR [Suspect]
     Indication: AFFECTIVE DISORDER
     Route: 048
     Dates: start: 20130626, end: 20130626
  4. ADVAIR [Concomitant]
     Indication: ASTHMA
     Dosage: 250/ 25, 2 PUFFS DAILY
     Route: 055
  5. ALBUTEROL [Concomitant]
     Indication: ASTHMA
     Dosage: 2 PUFFS PRN
     Route: 055

REACTIONS (10)
  - Suicidal behaviour [Unknown]
  - Impulsive behaviour [Unknown]
  - Somnolence [Unknown]
  - Suicidal ideation [Unknown]
  - Stress [Unknown]
  - Mental disorder [Unknown]
  - Malaise [Unknown]
  - Intentional drug misuse [Unknown]
  - Intentional drug misuse [Unknown]
  - Drug dose omission [Unknown]
